FAERS Safety Report 8771990 (Version 1)
Quarter: 2012Q4

REPORT INFORMATION
  Report Type: 
  Country: MX (occurrence: MX)
  Receive Date: 20120906
  Receipt Date: 20120906
  Transmission Date: 20130627
  Serious: Yes (Hospitalization)
  Sender: FDA-Public Use
  Company Number: MX-MYLANLABS-2012S1017980

PATIENT
  Sex: Male

DRUGS (4)
  1. CIPROFLOXACIN [Suspect]
     Route: 065
  2. LINEZOLID [Suspect]
     Route: 065
  3. MEROPENEM [Suspect]
     Route: 065
  4. VANCOMYCIN [Suspect]
     Route: 065

REACTIONS (1)
  - Systemic candida [Unknown]
